FAERS Safety Report 8501270-0 (Version None)
Quarter: 2012Q3

REPORT INFORMATION
  Report Type: 
  Country: None (occurrence: None)
  Receive Date: 20120710
  Receipt Date: 20120629
  Transmission Date: 20120928
  Serious: Yes (Other)
  Sender: FDA-Public Use
  Company Number: US-CELGENEUS-163-21880-12063996

PATIENT
  Age: 60 Year
  Sex: Male
  Weight: 89.6 kg

DRUGS (9)
  1. REVLIMID [Suspect]
     Dosage: 25 MILLIGRAM
     Route: 048
     Dates: end: 20120501
  2. PREDNISONE [Suspect]
     Indication: PROSTATE CANCER METASTATIC
     Dosage: 10 MILLIGRAM
     Route: 048
     Dates: start: 20120314
  3. REVLIMID [Suspect]
     Indication: PROSTATE CANCER METASTATIC
     Dosage: 25 MILLIGRAM
     Route: 048
     Dates: start: 20120314
  4. BEVACIZUMAB [Suspect]
     Dosage: 15 MILLIGRAM/KILOGRAM
     Route: 041
     Dates: start: 20120605, end: 20120605
  5. BIPHOSPHONATE-ZOMETA [Suspect]
     Route: 065
  6. BEVACIZUMAB [Suspect]
     Indication: PROSTATE CANCER METASTATIC
     Dosage: 15 MILLIGRAM/KILOGRAM
     Route: 041
     Dates: start: 20120314
  7. DOCETAXEL [Suspect]
     Indication: PROSTATE CANCER METASTATIC
     Dosage: 75 MILLIGRAM/SQ. METER
     Route: 041
     Dates: start: 20120314
  8. DOCETAXEL [Suspect]
     Dosage: 75 MILLIGRAM/SQ. METER
     Route: 041
     Dates: start: 20120605, end: 20120605
  9. PREDNISONE [Suspect]
     Dosage: 10 MILLIGRAM
     Route: 048
     Dates: start: 20120605

REACTIONS (1)
  - OSTEONECROSIS OF JAW [None]
